FAERS Safety Report 23665149 (Version 1)
Quarter: 2024Q1

REPORT INFORMATION
  Report Type: Spontaneous
  Country: US (occurrence: US)
  Receive Date: 20240322
  Receipt Date: 20240322
  Transmission Date: 20240410
  Serious: No
  Sender: FDA-Public Use
  Company Number: US-TEVA-VS-3139378

PATIENT
  Age: 79 Year
  Sex: Male

DRUGS (2)
  1. TESTOSTERONE [Suspect]
     Active Substance: TESTOSTERONE
     Indication: Product used for unknown indication
     Route: 065
  2. Smith-testosterone [Concomitant]
     Indication: Product used for unknown indication

REACTIONS (2)
  - Application site discomfort [Unknown]
  - Product physical consistency issue [Unknown]
